FAERS Safety Report 10978154 (Version 2)
Quarter: 2015Q3

REPORT INFORMATION
  Report Type: Report from Study
  Country: US (occurrence: US)
  Receive Date: 20150402
  Receipt Date: 20150805
  Transmission Date: 20151125
  Serious: Yes (Hospitalization, Other)
  Sender: FDA-Public Use
  Company Number: US-SA-2015SA039195

PATIENT
  Age: 57 Year
  Sex: Male

DRUGS (1)
  1. FABRAZYME [Suspect]
     Active Substance: AGALSIDASE BETA
     Indication: FABRY^S DISEASE
     Route: 042

REACTIONS (5)
  - Staphylococcal infection [Unknown]
  - Pyrexia [Unknown]
  - Osteomyelitis [Unknown]
  - Blood blister [Unknown]
  - Surgery [Recovering/Resolving]

NARRATIVE: CASE EVENT DATE: 2015
